FAERS Safety Report 18400903 (Version 3)
Quarter: 2020Q4

REPORT INFORMATION
  Report Type: Report from Study
  Country: IN (occurrence: IN)
  Receive Date: 20201019
  Receipt Date: 20201215
  Transmission Date: 20210114
  Serious: Yes (Hospitalization)
  Sender: FDA-Public Use
  Company Number: NVSC2020IN276626

PATIENT
  Age: 1 Year
  Sex: Female
  Weight: 7.9 kg

DRUGS (3)
  1. OMNACORTIL [Concomitant]
     Active Substance: PREDNISOLONE
     Dosage: 9.5 MG (1 MG/KG)
     Route: 065
     Dates: start: 20201130
  2. ZOLGENSMA [Suspect]
     Active Substance: ONASEMNOGENE ABEPARVOVEC-XIOI
     Indication: SPINAL MUSCULAR ATROPHY
     Dosage: 44 ML, ONCE/SINGLE
     Route: 042
     Dates: start: 20201008, end: 20201008
  3. OMNACORTIL [Concomitant]
     Active Substance: PREDNISOLONE
     Indication: PRODUCT USED FOR UNKNOWN INDICATION
     Dosage: 8 MG (1 MG/KG)
     Route: 065
     Dates: start: 20201007

REACTIONS (5)
  - Hepatic enzyme increased [Not Recovered/Not Resolved]
  - Vomiting [Recovered/Resolved]
  - Aspartate aminotransferase increased [Not Recovered/Not Resolved]
  - Pyrexia [Recovered/Resolved]
  - Alanine aminotransferase increased [Not Recovered/Not Resolved]

NARRATIVE: CASE EVENT DATE: 20201010
